FAERS Safety Report 15681988 (Version 1)
Quarter: 2018Q4

REPORT INFORMATION
  Report Type: Spontaneous
  Country: FR (occurrence: FR)
  Receive Date: 20181203
  Receipt Date: 20181203
  Transmission Date: 20190205
  Serious: Yes (Hospitalization)
  Sender: FDA-Public Use
  Company Number: FR-ETHYPHARM-201802572

PATIENT
  Age: 41 Year
  Sex: Male

DRUGS (12)
  1. AMPHETAMINE [Suspect]
     Active Substance: AMPHETAMINE
     Indication: DRUG ABUSE
     Dosage: NON RENSEIGN?E
     Route: 048
     Dates: start: 1991, end: 1992
  2. COCAINE [Suspect]
     Active Substance: COCAINE
     Indication: DRUG ABUSE
     Route: 055
     Dates: start: 2016, end: 20180906
  3. CANNABIS [Suspect]
     Active Substance: CANNABIS SATIVA SUBSP. INDICA TOP
     Indication: DRUG ABUSE
     Dosage: 3-4 JOINTS/SEMAINE
     Route: 055
  4. TRAMADOL (CHLORHYDRATE DE) [Suspect]
     Active Substance: TRAMADOL HYDROCHLORIDE
     Indication: PRODUCT USED FOR UNKNOWN INDICATION
     Dosage: NON RENSEIGN?E
     Route: 065
  5. BUPRENORPHINE. [Suspect]
     Active Substance: BUPRENORPHINE
     Indication: PRODUCT USED FOR UNKNOWN INDICATION
     Dosage: NON RENSEIGN?E
     Route: 065
  6. LSD 25 [Suspect]
     Active Substance: LYSERGIDE
     Indication: DRUG ABUSE
     Dosage: NON RENSEIGN?E
     Route: 065
  7. OPIUM. [Suspect]
     Active Substance: OPIUM
     Indication: DRUG DEPENDENCE
     Dosage: NON RENSEIGN?E
     Route: 055
     Dates: start: 1998
  8. VALIUM [Suspect]
     Active Substance: DIAZEPAM
     Indication: PRODUCT USED FOR UNKNOWN INDICATION
     Dosage: NON RENSEIGN?E
     Route: 048
     Dates: start: 2003
  9. COCAINE [Suspect]
     Active Substance: COCAINE
     Indication: DRUG ABUSE
     Route: 045
     Dates: start: 2003, end: 2007
  10. TABAC (POUDRE DE) [Suspect]
     Active Substance: TOBACCO LEAF
     Indication: TOBACCO USER
     Dosage: 39 PA
     Route: 055
     Dates: start: 1987
  11. ALCOOL [Suspect]
     Active Substance: ALCOHOL
     Indication: ALCOHOL USE
     Dosage: 1 BOUTEILLE DE VIN/JOUR
     Route: 048
     Dates: start: 1984
  12. HEROIN [Suspect]
     Active Substance: DIAMORPHINE
     Indication: DRUG DEPENDENCE
     Route: 045
     Dates: start: 1998, end: 2007

REACTIONS (5)
  - Alcohol abuse [Not Recovered/Not Resolved]
  - Intentional product misuse [Not Recovered/Not Resolved]
  - Drug abuse [Not Recovered/Not Resolved]
  - Drug abuse [Not Recovered/Not Resolved]
  - Drug abuse [Not Recovered/Not Resolved]

NARRATIVE: CASE EVENT DATE: 1991
